FAERS Safety Report 8052670-7 (Version None)
Quarter: 2012Q1

REPORT INFORMATION
  Report Type: 
  Country: None (occurrence: None)
  Receive Date: 20120118
  Receipt Date: 20120118
  Transmission Date: 20120608
  Serious: Yes (Other)
  Sender: FDA-Public Use
  Company Number: None

PATIENT
  Sex: Female
  Weight: 70.306 kg

DRUGS (1)
  1. FORTEO [Suspect]
     Indication: OSTEOPOROSIS
     Dosage: 20 MCG PER DOSE
     Route: 030
     Dates: start: 20120111, end: 20120115

REACTIONS (3)
  - PALPITATIONS [None]
  - TACHYCARDIA [None]
  - EXTRASYSTOLES [None]
